FAERS Safety Report 7828087-4 (Version None)
Quarter: 2011Q4

REPORT INFORMATION
  Report Type: 
  Country: None (occurrence: None)
  Receive Date: 20111018
  Receipt Date: 20111003
  Transmission Date: 20120403
  Serious: Yes (Death, Other)
  Sender: FDA-Public Use
  Company Number: OMPQ-NO-1110S-1154

PATIENT
  Age: 30 Year
  Sex: Female

DRUGS (3)
  1. OMNIPAQUE 70 [Suspect]
  2. OMNIPAQUE 70 [Suspect]
     Indication: PRODUCT USED FOR UNKNOWN INDICATION
     Dosage: NR, SINGLE DOSE, INTRAVENOUS
     Route: 042
     Dates: start: 20111003, end: 20111003
  3. OMNIPAQUE 70 [Suspect]

REACTIONS (2)
  - CHILLS [None]
  - DYSPNOEA [None]
